FAERS Safety Report 7196891-4 (Version None)
Quarter: 2010Q4

REPORT INFORMATION
  Report Type: 
  Country: None (occurrence: None)
  Receive Date: 20101223
  Receipt Date: 20101216
  Transmission Date: 20110411
  Serious: Yes (Hospitalization, Other)
  Sender: FDA-Public Use
  Company Number: US-AMGEN-KDL442595

PATIENT

DRUGS (9)
  1. PROCRIT [Suspect]
     Indication: ANAEMIA
     Dosage: 15000 IU, Q2WK
     Route: 058
  2. PIOGLITAZONE HCL [Concomitant]
     Dosage: 30 MG, QD
     Route: 048
  3. LOSARTAN POTASSIUM [Concomitant]
     Dosage: 100 MG, QD
     Route: 048
  4. FOLIC ACID [Concomitant]
     Dosage: 1 MG, QD
     Route: 048
  5. IRON [Concomitant]
     Dosage: 325 MG, QD
     Route: 048
  6. ATORVASTATIN CALCIUM [Concomitant]
     Dosage: 40 MG, QD
     Route: 048
  7. CILOSTAZOL [Concomitant]
     Dosage: 100 MG, BID
     Route: 048
  8. GEMFIBROZIL [Concomitant]
     Dosage: 600 MG, BID
     Route: 048
  9. AMLODIPINE [Concomitant]
     Dosage: 5 MG, BID
     Route: 048

REACTIONS (28)
  - ABDOMINAL PAIN UPPER [None]
  - BASAL CELL CARCINOMA [None]
  - CATARACT OPERATION [None]
  - CHOLECYSTECTOMY [None]
  - CIRCUMCISION [None]
  - COLD TYPE HAEMOLYTIC ANAEMIA [None]
  - COLONIC POLYP [None]
  - CONTUSION [None]
  - CORONARY ARTERY DISEASE [None]
  - CYSTOSCOPY [None]
  - DIABETIC NEPHROPATHY [None]
  - DIABETIC NEUROPATHY [None]
  - DIABETIC RETINOPATHY [None]
  - DIARRHOEA [None]
  - GANGRENE [None]
  - GASTRITIS [None]
  - GASTROOESOPHAGEAL REFLUX DISEASE [None]
  - HOSPITALISATION [None]
  - IMPAIRED HEALING [None]
  - MACULOPATHY [None]
  - PERIPHERAL ARTERIAL OCCLUSIVE DISEASE [None]
  - PERIPHERAL ARTERY ANGIOPLASTY [None]
  - PERIPHERAL ISCHAEMIA [None]
  - RENAL FAILURE CHRONIC [None]
  - RHINITIS ALLERGIC [None]
  - TOE AMPUTATION [None]
  - TRANSURETHRAL PROSTATECTOMY [None]
  - VITREOUS HAEMORRHAGE [None]
